FAERS Safety Report 23950618 (Version 9)
Quarter: 2025Q1

REPORT INFORMATION
  Report Type: Report from Study
  Country: JP (occurrence: JP)
  Receive Date: 20240607
  Receipt Date: 20250130
  Transmission Date: 20250409
  Serious: Yes (Death, Hospitalization, Other)
  Sender: ROCHE
  Company Number: JP-CHUGAI-2024007966

PATIENT
  Age: 43 Year
  Sex: Female
  Weight: 68 kg

DRUGS (3)
  1. TECENTRIQ [Suspect]
     Active Substance: ATEZOLIZUMAB
     Indication: Triple negative breast cancer
     Route: 040
     Dates: start: 20240119, end: 20240712
  2. HYDROMORPHONE HYDROCHLORIDE [Suspect]
     Active Substance: HYDROMORPHONE HYDROCHLORIDE
     Indication: Tumour pain
     Route: 065
     Dates: start: 2024
  3. PACLITAXEL [Suspect]
     Active Substance: PACLITAXEL
     Indication: Triple negative breast cancer
     Route: 040
     Dates: start: 20240119, end: 20240712

REACTIONS (8)
  - Diabetes mellitus [Not Recovered/Not Resolved]
  - Adrenal insufficiency [Not Recovered/Not Resolved]
  - Pleural effusion [Unknown]
  - Tumour pain [Recovering/Resolving]
  - Neutropenia [Recovered/Resolved]
  - Hypokalaemia [Not Recovered/Not Resolved]
  - Constipation [Recovering/Resolving]
  - Triple negative breast cancer [Fatal]

NARRATIVE: CASE EVENT DATE: 20240126
